FAERS Safety Report 18534144 (Version 1)
Quarter: 2020Q4

REPORT INFORMATION
  Report Type: Report from Study
  Country: TR (occurrence: TR)
  Receive Date: 20201123
  Receipt Date: 20201123
  Transmission Date: 20210114
  Serious: Yes (Other)
  Sender: FDA-Public Use
  Company Number: TR-PFIZER INC-2020457500

PATIENT
  Age: 2 Year
  Sex: Male

DRUGS (3)
  1. TALIGLUCERASE ALFA [Suspect]
     Active Substance: TALIGLUCERASE ALFA
     Indication: GAUCHER^S DISEASE
     Dosage: EVERY 2 WK
  2. PARACETAMOL [Concomitant]
     Active Substance: ACETAMINOPHEN
     Indication: PREMEDICATION
     Dosage: 10 MG/KG
  3. HYDROXYZINE [Concomitant]
     Active Substance: HYDROXYZINE HYDROCHLORIDE
     Indication: PREMEDICATION
     Dosage: 1 MG/KG

REACTIONS (8)
  - Anaphylactic reaction [Unknown]
  - Oxygen saturation decreased [Unknown]
  - Hypotension [Unknown]
  - Altered state of consciousness [Unknown]
  - Dyspnoea [Unknown]
  - Wheezing [Unknown]
  - Cyanosis [Unknown]
  - Pyrexia [Unknown]
